FAERS Safety Report 8300617-8 (Version None)
Quarter: 2012Q2

REPORT INFORMATION
  Report Type: 
  Country: None (occurrence: None)
  Receive Date: 20120418
  Receipt Date: 20120418
  Transmission Date: 20120825
  Serious: Yes (Hospitalization)
  Sender: FDA-Public Use
  Company Number: None

PATIENT
  Age: 77 Year
  Sex: Female

DRUGS (1)
  1. PROCRIT [Suspect]
     Indication: ANAEMIA
     Dosage: 10,000 UNITS WEEKLY SUBCUTANEOUSLY STARTED AROUND 12/30/2011, STILL ON IT
     Route: 058

REACTIONS (2)
  - VOMITING [None]
  - INFECTION [None]
